FAERS Safety Report 12185204 (Version 2)
Quarter: 2016Q2

REPORT INFORMATION
  Report Type: Spontaneous
  Country: FR (occurrence: FR)
  Receive Date: 20160316
  Receipt Date: 20160406
  Transmission Date: 20160815
  Serious: Yes (Other)
  Sender: FDA-Public Use
  Company Number: FR-BRISTOL-MYERS SQUIBB COMPANY-BMS-2016-017383

PATIENT
  Age: 83 Year
  Sex: Male
  Weight: 90 kg

DRUGS (6)
  1. DETENSIEL                          /00802601/ [Concomitant]
     Active Substance: BISOPROLOL FUMARATE
     Indication: BLOOD PRESSURE MEASUREMENT
     Dosage: 2.5 MG, QD
     Route: 048
  2. DOLIPRANE [Concomitant]
     Active Substance: ACETAMINOPHEN
     Indication: OSTEOARTHRITIS
     Dosage: 3 MG, QD
     Route: 065
  3. IMUREL                             /00001501/ [Concomitant]
     Active Substance: AZATHIOPRINE SODIUM
     Indication: BLOOD PRESSURE MEASUREMENT
     Dosage: 20 MG, QD
     Route: 048
  4. ELIQUIS [Suspect]
     Active Substance: APIXABAN
     Indication: CEREBROVASCULAR ACCIDENT PROPHYLAXIS
     Dosage: 5 MG, BID
     Route: 048
     Dates: start: 20151229
  5. AZANTAC [Concomitant]
     Active Substance: RANITIDINE HYDROCHLORIDE
     Indication: PROPHYLAXIS
     Dosage: 150 MG, QD
     Route: 048
  6. URBANYL [Concomitant]
     Active Substance: CLOBAZAM
     Indication: ANXIETY
     Dosage: 10 MG, QD
     Route: 048

REACTIONS (4)
  - General physical health deterioration [Unknown]
  - Haematochezia [Not Recovered/Not Resolved]
  - Duodenal ulcer [Not Recovered/Not Resolved]
  - Peptic ulcer [Unknown]

NARRATIVE: CASE EVENT DATE: 20160307
